FAERS Safety Report 12257158 (Version 2)
Quarter: 2017Q2

REPORT INFORMATION
  Report Type: Spontaneous
  Country: US (occurrence: US)
  Receive Date: 20160412
  Receipt Date: 20170426
  Transmission Date: 20170830
  Serious: Yes (Hospitalization)
  Sender: FDA-Public Use
  Company Number: US-JNJFOC-20160327233

PATIENT
  Age: 56 Year
  Sex: Male

DRUGS (5)
  1. FENTANYL TRANSDERMAL SYSTEM [Suspect]
     Active Substance: FENTANYL
     Indication: HYPERAESTHESIA
     Dosage: TOTAL 24 HOUR DOSE=288 MCG
     Route: 062
  2. HYDROMORPHONE [Suspect]
     Active Substance: HYDROMORPHONE
     Indication: HYPERAESTHESIA
     Route: 042
  3. MORPHINE [Suspect]
     Active Substance: MORPHINE
     Indication: HYPERAESTHESIA
     Route: 065
  4. HYDROMORPHONE HCL [Suspect]
     Active Substance: HYDROMORPHONE HYDROCHLORIDE
     Indication: HYPERAESTHESIA
     Route: 048
  5. FENTANYL. [Suspect]
     Active Substance: FENTANYL
     Indication: HYPERAESTHESIA
     Route: 042

REACTIONS (1)
  - Hyperaesthesia [Recovered/Resolved]
